FAERS Safety Report 5190878-9 (Version None)
Quarter: 2006Q4

REPORT INFORMATION
  Report Type: 
  Country: None (occurrence: None)
  Receive Date: 20061222
  Receipt Date: 20060914
  Transmission Date: 20070319
  Serious: Yes (Other)
  Sender: FDA-Public Use
  Company Number: US-ELI_LILLY_AND_COMPANY-US200609003791

PATIENT
  Age: 34 Year
  Sex: Female
  Weight: 89.795 kg

DRUGS (4)
  1. SEROQUEL [Concomitant]
     Dosage: UNK, UNKNOWN
     Dates: start: 19960101
  2. HALDOL [Concomitant]
     Dosage: UNK, UNKNOWN
     Dates: start: 19960101
  3. ZOLOFT [Concomitant]
     Dosage: UNK, UNKNOWN
     Dates: start: 19950101, end: 20050101
  4. ZYPREXA [Suspect]
     Dosage: UNK, UNKNOWN
     Dates: start: 20030101, end: 20040101

REACTIONS (5)
  - BLOOD CHOLESTEROL INCREASED [None]
  - MENORRHAGIA [None]
  - PANCREATITIS [None]
  - POLYURIA [None]
  - VISION BLURRED [None]
